FAERS Safety Report 4807073-2 (Version None)
Quarter: 2005Q4

REPORT INFORMATION
  Report Type: 
  Country: None (occurrence: None)
  Receive Date: 20051024
  Receipt Date: 20051017
  Transmission Date: 20060501
  Serious: Yes (Hospitalization)
  Sender: FDA-Public Use
  Company Number: FR-BRISTOL-MYERS SQUIBB COMPANY-13148309

PATIENT
  Age: 3 Month
  Sex: Male
  Weight: 6 kg

DRUGS (1)
  1. MUCOMYST [Suspect]
     Dates: start: 20050910, end: 20050911

REACTIONS (3)
  - CONDITION AGGRAVATED [None]
  - COUGH [None]
  - RHONCHI [None]
